FAERS Safety Report 6473712-6 (Version None)
Quarter: 2009Q4

REPORT INFORMATION
  Report Type: 
  Country: None (occurrence: None)
  Receive Date: 20091125
  Receipt Date: 20091116
  Transmission Date: 20100525
  Serious: Yes (Hospitalization)
  Sender: FDA-Public Use
  Company Number: 09US005103

PATIENT
  Age: 27 Year
  Sex: Female

DRUGS (1)
  1. ACETAMINOPHEN [Suspect]
     Indication: INTENTIONAL OVERDOSE
     Dosage: DOSE OVER 2 DAYS

REACTIONS (13)
  - ACUTE HEPATIC FAILURE [None]
  - AMMONIA INCREASED [None]
  - BRAIN OEDEMA [None]
  - COAGULOPATHY [None]
  - CONTINUOUS HAEMODIAFILTRATION [None]
  - DRUG TOXICITY [None]
  - ENCEPHALOPATHY [None]
  - HYPOGLYCAEMIA [None]
  - INTRACRANIAL PRESSURE INCREASED [None]
  - LETHARGY [None]
  - MENTAL STATUS CHANGES [None]
  - OVERDOSE [None]
  - UNRESPONSIVE TO STIMULI [None]
